FAERS Safety Report 9328239 (Version 1)
Quarter: 2013Q2

REPORT INFORMATION
  Report Type: Spontaneous
  Country: US (occurrence: US)
  Receive Date: 20130604
  Receipt Date: 20130604
  Transmission Date: 20140414
  Serious: No
  Sender: FDA-Public Use
  Company Number: US-SANOFI-AVENTIS-2012SA039329

PATIENT
  Age: 66 Year
  Sex: Female

DRUGS (5)
  1. SOLOSTAR [Suspect]
     Indication: DEVICE THERAPY
     Dates: start: 20101101, end: 20120530
  2. LANTUS SOLOSTAR [Suspect]
     Indication: DIABETES MELLITUS
     Dosage: DOSE:30 UNIT(S)
     Route: 058
     Dates: start: 20101101, end: 20120530
  3. GLYBURIDE W/METFORMIN [Concomitant]
     Indication: DIABETES MELLITUS
     Dosage: 5/500 MG TWICE DAILY
     Dates: start: 20120321
  4. ATORVASTATIN [Concomitant]
     Indication: BLOOD CHOLESTEROL INCREASED
     Dates: start: 20120416
  5. QUINAPRIL [Concomitant]
     Indication: BLOOD PRESSURE
     Dates: start: 20120502

REACTIONS (2)
  - Muscle spasms [Recovered/Resolved]
  - Hypoaesthesia [Recovered/Resolved]
